FAERS Safety Report 6102192-5 (Version None)
Quarter: 2009Q1

REPORT INFORMATION
  Report Type: 
  Country: None (occurrence: None)
  Receive Date: 20090303
  Receipt Date: 20090303
  Transmission Date: 20090719
  Serious: Yes (Hospitalization)
  Sender: FDA-Public Use
  Company Number: None

PATIENT
  Sex: Male
  Weight: 131.7 kg

DRUGS (1)
  1. KEFLEX [Suspect]
     Indication: CELLULITIS

REACTIONS (1)
  - CLOSTRIDIAL INFECTION [None]
